FAERS Safety Report 12583578 (Version 1)
Quarter: 2016Q3

REPORT INFORMATION
  Report Type: Spontaneous
  Country: US (occurrence: US)
  Receive Date: 20160722
  Receipt Date: 20160722
  Transmission Date: 20161109
  Serious: No
  Sender: FDA-Public Use
  Company Number: US-GALDERMA-US16002846

PATIENT
  Age: 18 Year
  Sex: Female

DRUGS (4)
  1. DIFFERIN [Suspect]
     Active Substance: ADAPALENE
     Indication: ACNE
     Route: 061
     Dates: start: 2014, end: 2014
  2. DIFFERIN [Suspect]
     Active Substance: ADAPALENE
     Route: 061
     Dates: start: 2014, end: 2014
  3. DIFFERIN [Suspect]
     Active Substance: ADAPALENE
  4. DIFFERIN [Suspect]
     Active Substance: ADAPALENE

REACTIONS (3)
  - Dermatitis allergic [Recovered/Resolved]
  - Rash [Recovered/Resolved]
  - Skin exfoliation [Recovered/Resolved]

NARRATIVE: CASE EVENT DATE: 2014
